FAERS Safety Report 24416850 (Version 1)
Quarter: 2024Q4

REPORT INFORMATION
  Report Type: Spontaneous
  Country: CN (occurrence: CN)
  Receive Date: 20241009
  Receipt Date: 20241009
  Transmission Date: 20250115
  Serious: Yes (Life-Threatening, Other)
  Sender: BAXTER
  Company Number: None

PATIENT
  Age: 67 Year
  Sex: Female
  Weight: 32 kg

DRUGS (3)
  1. CYCLOPHOSPHAMIDE [Suspect]
     Active Substance: CYCLOPHOSPHAMIDE
     Indication: Non-Hodgkin^s lymphoma
     Dosage: 500 MG (40GTT/MIN), ONE TIME IN ONE DAY, ST, DILUTED WITH 500 ML OF 0.9% SODIUM CHLORIDE, AT 16:00
     Route: 041
     Dates: start: 20240904, end: 20240904
  2. CYCLOPHOSPHAMIDE [Suspect]
     Active Substance: CYCLOPHOSPHAMIDE
     Indication: Chemotherapy
  3. SODIUM CHLORIDE [Suspect]
     Active Substance: SODIUM CHLORIDE
     Indication: Medication dilution
     Dosage: 500 ML (40GTT/MIN), ONE TIME IN ONE DAY, ST, USED TO DILUTE 500 MG OF CYCLOPHOSPHAMIDE, AT 16:00
     Route: 041
     Dates: start: 20240904, end: 20240904

REACTIONS (9)
  - Hyperpyrexia [Recovering/Resolving]
  - Oxygen saturation decreased [Recovering/Resolving]
  - Cyanosis [Recovering/Resolving]
  - Tumour lysis syndrome [Recovering/Resolving]
  - Non-Hodgkin^s lymphoma [Unknown]
  - Condition aggravated [Unknown]
  - Chills [Recovering/Resolving]
  - Chest discomfort [Recovering/Resolving]
  - Dyspnoea [Recovering/Resolving]

NARRATIVE: CASE EVENT DATE: 20240904
